FAERS Safety Report 15702830 (Version 6)
Quarter: 2019Q3

REPORT INFORMATION
  Report Type: Spontaneous
  Country: PT (occurrence: PT)
  Receive Date: 20181210
  Receipt Date: 20190910
  Transmission Date: 20191004
  Serious: Yes (Hospitalization, Other)
  Sender: FDA-Public Use
  Company Number: PT-009507513-1811PRT007123

PATIENT
  Age: 31 Year
  Sex: Female

DRUGS (3)
  1. IMPLANON [Suspect]
     Active Substance: ETONOGESTREL
     Indication: CONTRACEPTION
     Dosage: ONE IMPLANT
     Route: 058
     Dates: start: 2010, end: 2013
  2. IMPLANON [Suspect]
     Active Substance: ETONOGESTREL
     Dosage: ONE IMPLANT
     Route: 058
     Dates: start: 2017, end: 20190222
  3. IMPLANON [Suspect]
     Active Substance: ETONOGESTREL
     Dosage: ONE IMPLANT
     Route: 058
     Dates: start: 2013

REACTIONS (5)
  - Metrorrhagia [Recovered/Resolved]
  - Complication associated with device [Recovered/Resolved]
  - Device embolisation [Recovered/Resolved]
  - Complication of device removal [Recovered/Resolved]
  - Device dislocation [Recovered/Resolved]

NARRATIVE: CASE EVENT DATE: 2017
